FAERS Safety Report 22851288 (Version 4)
Quarter: 2023Q4

REPORT INFORMATION
  Report Type: Report from Study
  Country: KR (occurrence: KR)
  Receive Date: 20230822
  Receipt Date: 20231114
  Transmission Date: 20240110
  Serious: No
  Sender: FDA-Public Use
  Company Number: KR-ABBVIE-5361858

PATIENT
  Age: 37 Year
  Sex: Male
  Weight: 68.3 kg

DRUGS (5)
  1. CARIPRAZINE HYDROCHLORIDE [Suspect]
     Active Substance: CARIPRAZINE HYDROCHLORIDE
     Indication: Schizophrenia
     Dates: start: 20230710, end: 20230710
  2. CARIPRAZINE HYDROCHLORIDE [Suspect]
     Active Substance: CARIPRAZINE HYDROCHLORIDE
     Indication: Schizophrenia
     Dates: start: 20230711, end: 20230711
  3. CARIPRAZINE HYDROCHLORIDE [Suspect]
     Active Substance: CARIPRAZINE HYDROCHLORIDE
     Indication: Schizophrenia
     Dates: start: 20230712, end: 20230712
  4. CARIPRAZINE HYDROCHLORIDE [Suspect]
     Active Substance: CARIPRAZINE HYDROCHLORIDE
     Indication: Schizophrenia
     Dates: start: 20230713, end: 20230716
  5. CARIPRAZINE HYDROCHLORIDE [Suspect]
     Active Substance: CARIPRAZINE HYDROCHLORIDE
     Indication: Schizophrenia
     Dates: start: 20230719, end: 20230730

REACTIONS (1)
  - Retinal degeneration [Recovered/Resolved with Sequelae]

NARRATIVE: CASE EVENT DATE: 20230731
